FAERS Safety Report 20345763 (Version 1)
Quarter: 2022Q1

REPORT INFORMATION
  Report Type: Spontaneous
  Country: US (occurrence: US)
  Receive Date: 20220118
  Receipt Date: 20220118
  Transmission Date: 20220423
  Serious: No
  Sender: FDA-Public Use
  Company Number: US-GSKCCFUS-Case-01265960_AE-74030

PATIENT
  Age: 76 Year
  Sex: Male

DRUGS (1)
  1. SOTROVIMAB [Suspect]
     Active Substance: SOTROVIMAB
     Indication: Product used for unknown indication
     Dosage: 500 MG
     Dates: start: 20220112

REACTIONS (7)
  - Feeling abnormal [Unknown]
  - Speech disorder [Unknown]
  - Insomnia [Unknown]
  - Cough [Unknown]
  - Pyrexia [Unknown]
  - Chills [Recovered/Resolved]
  - Headache [Unknown]

NARRATIVE: CASE EVENT DATE: 20220112
